FAERS Safety Report 9055606 (Version 1)
Quarter: 2013Q1

REPORT INFORMATION
  Report Type: Spontaneous
  Country: US (occurrence: US)
  Receive Date: 20130206
  Receipt Date: 20130206
  Transmission Date: 20140127
  Serious: Yes (Death, Other)
  Sender: FDA-Public Use
  Company Number: US-ELI_LILLY_AND_COMPANY-US201301010613

PATIENT
  Sex: 0

DRUGS (4)
  1. GEMCITABINE HYDROCHLORIDE [Suspect]
     Indication: PERIPHERAL T-CELL LYMPHOMA UNSPECIFIED
     Dosage: 1000 MG/M2, OTHER
     Route: 042
  2. CISPLATIN [Concomitant]
     Indication: PERIPHERAL T-CELL LYMPHOMA UNSPECIFIED
     Dosage: 25 MG/M2, OTHER
     Route: 042
  3. ETOPOSIDE [Concomitant]
     Indication: PERIPHERAL T-CELL LYMPHOMA UNSPECIFIED
     Dosage: 40 MG/M2, OTHER
  4. METHYLPREDNISOLONE [Concomitant]
     Indication: PERIPHERAL T-CELL LYMPHOMA UNSPECIFIED
     Dosage: 250 MG, OTHER

REACTIONS (2)
  - Infection [Fatal]
  - Neutropenia [Fatal]
